FAERS Safety Report 9955363 (Version 1)
Quarter: 2014Q1

REPORT INFORMATION
  Report Type: Spontaneous
  Country: FI (occurrence: FI)
  Receive Date: 20140304
  Receipt Date: 20140304
  Transmission Date: 20141002
  Serious: Yes (Life-Threatening)
  Sender: FDA-Public Use
  Company Number: FI-MYLANLABS-2014S1003923

PATIENT
  Age: 50 Year
  Sex: Female

DRUGS (10)
  1. METFORMIN [Suspect]
     Indication: DIABETES MELLITUS
  2. CIPROXIN [Concomitant]
     Indication: URINARY TRACT INFECTION
     Route: 048
     Dates: start: 20140122
  3. SURMONTIL [Concomitant]
     Indication: INSOMNIA
     Route: 048
     Dates: start: 20131104
  4. MIRTAZAPINE [Concomitant]
     Indication: DIABETES MELLITUS
     Route: 048
     Dates: start: 20131104
  5. LANTUS [Concomitant]
     Indication: DIABETES MELLITUS
     Route: 058
     Dates: start: 20131201
  6. PRIMASPAN [Concomitant]
     Indication: CORONARY ARTERY DISEASE
     Route: 048
     Dates: start: 20131211
  7. PANTOPRAZOLE [Concomitant]
     Indication: GASTRITIS
     Route: 048
     Dates: start: 20131214
  8. FLIXOTIDE [Concomitant]
     Indication: ASTHMA
     Route: 055
     Dates: start: 201308
  9. BISOPROLOL [Concomitant]
     Indication: HYPERTENSION
     Route: 048
  10. AMLODIPINE [Concomitant]
     Indication: HYPERTENSION
     Route: 048
     Dates: start: 20131211

REACTIONS (3)
  - Lactic acidosis [Not Recovered/Not Resolved]
  - Anuria [Not Recovered/Not Resolved]
  - Circulatory collapse [Not Recovered/Not Resolved]
